FAERS Safety Report 4290400-5 (Version None)
Quarter: 2004Q1

REPORT INFORMATION
  Report Type: 
  Country: None (occurrence: None)
  Receive Date: 20040126
  Receipt Date: 20030924
  Transmission Date: 20041129
  Serious: No
  Sender: FDA-Public Use
  Company Number: USA030948214

PATIENT
  Age: 83 Year
  Sex: Female
  Weight: 43 kg

DRUGS (2)
  1. FORTEO [Suspect]
     Indication: OSTEOPOROSIS
     Dosage: 20UG/DAY
     Dates: start: 20030501
  2. MULTIVITAMIN [Concomitant]

REACTIONS (2)
  - BONE DISORDER [None]
  - COCCYDYNIA [None]
